FAERS Safety Report 23464408 (Version 2)
Quarter: 2024Q1

REPORT INFORMATION
  Report Type: Spontaneous
  Country: US (occurrence: US)
  Receive Date: 20240201
  Receipt Date: 20240209
  Transmission Date: 20240410
  Serious: Yes (Other)
  Sender: FDA-Public Use
  Company Number: US-HALEON-USCH2024005229

PATIENT
  Sex: Female

DRUGS (1)
  1. ROBITUSSIN HONEY SEVERE COUGH, FLU PLUS SORE THROAT [Suspect]
     Active Substance: ACETAMINOPHEN\DEXTROMETHORPHAN HYDROBROMIDE
     Indication: Product used for unknown indication
     Dosage: UNK

REACTIONS (9)
  - Abortion spontaneous [Unknown]
  - Diarrhoea haemorrhagic [Unknown]
  - Exposure during pregnancy [Unknown]
  - Illness [Unknown]
  - Condition aggravated [Unknown]
  - General physical health deterioration [Unknown]
  - Emotional distress [Unknown]
  - Recalled product administered [Unknown]
  - Medication error [Unknown]
